FAERS Safety Report 25906012 (Version 1)
Quarter: 2025Q4

REPORT INFORMATION
  Report Type: Report from Study
  Country: IN (occurrence: IN)
  Receive Date: 20251010
  Receipt Date: 20251010
  Transmission Date: 20260117
  Serious: Yes (Death, Other)
  Sender: PFIZER
  Company Number: IN-TAKEDA-2025TUS071346

PATIENT
  Age: 55 Year
  Sex: Male

DRUGS (1)
  1. ADCETRIS [Suspect]
     Active Substance: BRENTUXIMAB VEDOTIN
     Indication: Anaplastic large cell lymphoma T- and null-cell types
     Dosage: 50 MILLIGRAM
     Route: 042
     Dates: start: 20250726

REACTIONS (2)
  - Death [Fatal]
  - Product administration error [Unknown]

NARRATIVE: CASE EVENT DATE: 20251002
